FAERS Safety Report 20818811 (Version 2)
Quarter: 2022Q4

REPORT INFORMATION
  Report Type: Report from Study
  Country: GB (occurrence: GB)
  Receive Date: 20220512
  Receipt Date: 20221202
  Transmission Date: 20230112
  Serious: Yes (Hospitalization, Other)
  Sender: FDA-Public Use
  Company Number: GB-ROCHE-3090251

PATIENT
  Age: 67 Year
  Sex: Female

DRUGS (59)
  1. TRASTUZUMAB [Suspect]
     Active Substance: TRASTUZUMAB
     Indication: Breast cancer metastatic
     Dosage: 1200 MILLIGRAM, Q3W
     Route: 058
     Dates: start: 20210715, end: 20210923
  2. TRASTUZUMAB [Suspect]
     Active Substance: TRASTUZUMAB
     Dosage: 483 MILLIGRAM, Q3W
     Route: 042
     Dates: start: 20170915, end: 20180209
  3. TRASTUZUMAB [Suspect]
     Active Substance: TRASTUZUMAB
     Dosage: 504 MILLIGRAM, Q3W
     Route: 042
     Dates: start: 20180209, end: 20210715
  4. TRASTUZUMAB [Suspect]
     Active Substance: TRASTUZUMAB
     Dosage: 504 MILLIGRAM, Q3W
     Route: 042
     Dates: start: 20211122, end: 20220321
  5. TRASTUZUMAB [Suspect]
     Active Substance: TRASTUZUMAB
     Dosage: 630 MILLIGRAM, Q3W
     Route: 042
     Dates: start: 20170825, end: 20170825
  6. TRASTUZUMAB [Suspect]
     Active Substance: TRASTUZUMAB
     Dosage: 651 MILLIGRAM (LOADING DOSE  )
     Route: 042
     Dates: start: 20211111, end: 20211111
  7. DOCETAXEL [Suspect]
     Active Substance: DOCETAXEL
     Indication: Breast cancer metastatic
     Dosage: 108 MILLIGRAM, Q3W
     Route: 042
     Dates: start: 20170825, end: 20170915
  8. DOCETAXEL [Suspect]
     Active Substance: DOCETAXEL
     Dosage: 96 MILLIGRAM, Q3W
     Route: 042
     Dates: start: 20170915, end: 20171208
  9. EXEMESTANE [Suspect]
     Active Substance: EXEMESTANE
     Indication: Breast cancer metastatic
     Dosage: 25 MILLIGRAM, QD
     Route: 048
     Dates: start: 20180209
  10. PERTUZUMAB [Suspect]
     Active Substance: PERTUZUMAB
     Indication: Breast cancer metastatic
     Dosage: 420 MILLIGRAM, Q3W
     Route: 042
     Dates: start: 20211122, end: 20220321
  11. PERTUZUMAB [Suspect]
     Active Substance: PERTUZUMAB
     Dosage: 840 MILLIGRAM, Q3W
     Route: 042
     Dates: start: 20170824, end: 20170824
  12. PERTUZUMAB [Suspect]
     Active Substance: PERTUZUMAB
     Dosage: 420 MILLIGRAM, Q3W
     Route: 042
     Dates: start: 20170915, end: 20210715
  13. PERTUZUMAB [Suspect]
     Active Substance: PERTUZUMAB
     Dosage: 840 MILLIGRAM, Q3W (LOADING DOSE  )
     Route: 042
     Dates: start: 20211111, end: 20211111
  14. PERTUZUMAB [Suspect]
     Active Substance: PERTUZUMAB
     Dosage: 1200 MILLIGRAM, Q3W
     Route: 058
     Dates: start: 20210715, end: 20210923
  15. HYALURONIDASE [Suspect]
     Active Substance: HYALURONIDASE
     Indication: Breast cancer metastatic
     Dosage: 1200 MILLIGRAM, Q3W
     Route: 058
     Dates: start: 20210715, end: 20210923
  16. CALCIUM CARBONATE\CHOLECALCIFEROL [Concomitant]
     Active Substance: CALCIUM CARBONATE\CHOLECALCIFEROL
     Dosage: 1 DOSAGE FORM, QD
     Route: 048
     Dates: start: 20170825
  17. ALENDRONIC ACID [Concomitant]
     Active Substance: ALENDRONIC ACID
     Dosage: 70 MILLIGRAM, QW
     Route: 048
  18. AMLODIPINE [Concomitant]
     Active Substance: AMLODIPINE BESYLATE
     Indication: Hypertension
     Dosage: 5 MILLIGRAM, QD
     Route: 048
  19. AMOXICILLIN [Concomitant]
     Active Substance: AMOXICILLIN
     Dosage: 500 MILLIGRAM, TID
     Route: 048
     Dates: start: 20210205, end: 20210212
  20. AMOXICILLIN [Concomitant]
     Active Substance: AMOXICILLIN
     Dosage: 500 MILLIGRAM, TID
     Route: 048
     Dates: start: 20220330, end: 20220409
  21. AMOXICILLIN [Concomitant]
     Active Substance: AMOXICILLIN
     Dosage: 500 MILLIGRAM, TID
     Route: 048
     Dates: start: 20191104, end: 20191112
  22. AMOXICILLIN [Concomitant]
     Active Substance: AMOXICILLIN
     Dosage: 625 MILLIGRAM, TID
     Route: 048
     Dates: start: 20210315, end: 20210322
  23. APIXABAN [Concomitant]
     Active Substance: APIXABAN
     Dosage: 10 MILLIGRAM, QD
     Route: 048
     Dates: start: 20220614
  24. MYROXYLON BALSAMUM [Concomitant]
     Indication: Haemorrhoids
     Dosage: UNK, QD
     Route: 061
     Dates: start: 20180504
  25. CIPROFLOXACIN [Concomitant]
     Active Substance: CIPROFLOXACIN
     Dosage: 500 MILLIGRAM, BID
     Route: 048
     Dates: start: 20220622
  26. CLARITHROMYCIN [Concomitant]
     Active Substance: CLARITHROMYCIN
     Dosage: 500 MILLIGRAM, BID
     Route: 048
     Dates: start: 20200121, end: 20200128
  27. CLARITHROMYCIN [Concomitant]
     Active Substance: CLARITHROMYCIN
     Dosage: 250 MILLIGRAM, BID
     Route: 048
     Dates: start: 20220419, end: 20220426
  28. CLARITHROMYCIN [Concomitant]
     Active Substance: CLARITHROMYCIN
     Dosage: 500 MILLIGRAM, BID
     Route: 048
     Dates: start: 20200203, end: 20200210
  29. CLOPIDOGREL [Concomitant]
     Active Substance: CLOPIDOGREL BISULFATE
     Dosage: 75 MILLIGRAM, QD
     Route: 048
     Dates: start: 20220612, end: 20220628
  30. AMOXICILLIN\CLAVULANATE POTASSIUM [Concomitant]
     Active Substance: AMOXICILLIN\CLAVULANATE POTASSIUM
     Dosage: 625 MILLIGRAM, TID
     Route: 048
     Dates: start: 20190122, end: 20190127
  31. AMOXICILLIN\CLAVULANATE POTASSIUM [Concomitant]
     Active Substance: AMOXICILLIN\CLAVULANATE POTASSIUM
     Dosage: 625 MILLIGRAM, TID
     Route: 048
     Dates: start: 20200203, end: 20200210
  32. AMOXICILLIN\CLAVULANATE POTASSIUM [Concomitant]
     Active Substance: AMOXICILLIN\CLAVULANATE POTASSIUM
     Dosage: 625 MILLIGRAM, TID
     Route: 048
     Dates: start: 20200121, end: 20200128
  33. AMOXICILLIN\CLAVULANATE POTASSIUM [Concomitant]
     Active Substance: AMOXICILLIN\CLAVULANATE POTASSIUM
     Dosage: 1.2 GRAM, TID
     Route: 042
     Dates: start: 20190117, end: 20190121
  34. CYCLIZINE [Concomitant]
     Active Substance: CYCLIZINE
     Indication: Nausea
     Dosage: 50 MILLIGRAM
     Route: 048
     Dates: start: 20190718
  35. DENOSUMAB [Concomitant]
     Active Substance: DENOSUMAB
     Dosage: 120 MILLIGRAM, MONTHLY
     Route: 058
     Dates: start: 20180706
  36. DOXYCYCLINE [Concomitant]
     Active Substance: DOXYCYCLINE
     Dosage: 200 MILLIGRAM, BID
     Route: 048
     Dates: start: 20191104, end: 20191111
  37. LANOLIN\LIGHT MINERAL OIL\PARAFFIN [Concomitant]
     Active Substance: LANOLIN\LIGHT MINERAL OIL\PARAFFIN
     Indication: Pruritus
     Dosage: UNK
     Route: 061
     Dates: start: 20180810
  38. FERROUS SULFATE [Concomitant]
     Active Substance: FERROUS SULFATE
     Indication: Anaemia
     Dosage: 200 MILLIGRAM, QD
     Route: 048
  39. FUROSEMIDE [Concomitant]
     Active Substance: FUROSEMIDE
     Dosage: 40 MILLIGRAM, QD
     Route: 048
     Dates: start: 20220612
  40. IBUPROFEN [Concomitant]
     Active Substance: IBUPROFEN
     Indication: Pain
     Dosage: 400 MILLIGRAM
     Route: 048
     Dates: start: 20190718
  41. LANSOPRAZOLE [Concomitant]
     Active Substance: LANSOPRAZOLE
     Dosage: 30 MILLIGRAM
     Route: 048
  42. LOPERAMIDE [Concomitant]
     Active Substance: LOPERAMIDE
     Dosage: 2 MILLIGRAM
     Route: 048
     Dates: start: 20210913
  43. LOSARTAN [Concomitant]
     Active Substance: LOSARTAN
     Indication: Hypertension
     Dosage: 50 MILLIGRAM, QD
     Route: 048
  44. MENTHOL [Concomitant]
     Active Substance: MENTHOL
     Indication: Rash pruritic
     Dosage: UNK
     Route: 061
     Dates: start: 20180810
  45. NITROFURANTOIN [Concomitant]
     Active Substance: NITROFURANTOIN
     Dosage: 50 MILLIGRAM, QID
     Route: 048
     Dates: start: 20210107, end: 20210112
  46. ACETAMINOPHEN [Concomitant]
     Active Substance: ACETAMINOPHEN
     Dosage: 1 GRAM
     Route: 048
     Dates: start: 20190117
  47. CHLORPHENIRAMINE MALEATE [Concomitant]
     Active Substance: CHLORPHENIRAMINE MALEATE
     Indication: Rash
     Dosage: 4 MILLIGRAM
     Route: 048
     Dates: start: 20180504
  48. RAMIPRIL [Concomitant]
     Active Substance: RAMIPRIL
     Indication: Hypertension
     Dosage: 2.5 MILLIGRAM, QD
     Route: 048
     Dates: start: 20180504
  49. ALBUTEROL [Concomitant]
     Active Substance: ALBUTEROL
     Dosage: UNK (DOSE: 2 PUFF  )
     Route: 065
  50. SODIUM CHLORIDE [Concomitant]
     Active Substance: SODIUM CHLORIDE
     Dosage: 1000 MILLILITER
     Route: 042
     Dates: start: 20190118, end: 20190118
  51. SERTRALINE [Concomitant]
     Active Substance: SERTRALINE HYDROCHLORIDE
     Indication: Depression
     Dosage: 100 MILLIGRAM, QD
     Route: 048
  52. PIPERACILLIN SODIUM\TAZOBACTAM SODIUM [Concomitant]
     Active Substance: PIPERACILLIN SODIUM\TAZOBACTAM SODIUM
     Dosage: 4.5 MILLIGRAM
     Route: 042
     Dates: start: 20200201, end: 20200201
  53. PIPERACILLIN SODIUM\TAZOBACTAM SODIUM [Concomitant]
     Active Substance: PIPERACILLIN SODIUM\TAZOBACTAM SODIUM
     Dosage: 4.5 GRAM, TID
     Route: 042
     Dates: start: 20220611, end: 20220622
  54. PIPERACILLIN SODIUM\TAZOBACTAM SODIUM [Concomitant]
     Active Substance: PIPERACILLIN SODIUM\TAZOBACTAM SODIUM
     Dosage: 4.5 GRAM, TID
     Route: 042
     Dates: start: 20210308, end: 20210312
  55. TINZAPARIN [Concomitant]
     Active Substance: TINZAPARIN
     Dosage: 4500 INTERNATIONAL UNIT, QD
     Route: 058
     Dates: start: 20190117
  56. TINZAPARIN [Concomitant]
     Active Substance: TINZAPARIN
     Dosage: UNK, QD (DOSE: 11000 UNIT)
     Route: 058
     Dates: start: 20220612, end: 20220613
  57. ZOLEDRONIC ACID [Concomitant]
     Active Substance: ZOLEDRONIC ACID
     Dosage: 3.5 MILLIGRAM, Q3W
     Route: 042
     Dates: start: 20180302, end: 20180525
  58. ZOLEDRONIC ACID [Concomitant]
     Active Substance: ZOLEDRONIC ACID
     Dosage: 4 MILLIGRAM, Q3W
     Route: 042
     Dates: start: 20170915, end: 20180209
  59. ZOLEDRONIC ACID [Concomitant]
     Active Substance: ZOLEDRONIC ACID
     Dosage: 3.3 MILLIGRAM, Q3W
     Route: 042
     Dates: start: 20180525, end: 20180706

REACTIONS (3)
  - Rectal cancer [Not Recovered/Not Resolved]
  - Rectal haemorrhage [Recovered/Resolved]
  - Platelet count decreased [Not Recovered/Not Resolved]

NARRATIVE: CASE EVENT DATE: 20211117
